FAERS Safety Report 19452741 (Version 1)
Quarter: 2021Q2

REPORT INFORMATION
  Report Type: Report from Study
  Country: None (occurrence: CA)
  Receive Date: 20210623
  Receipt Date: 20210623
  Transmission Date: 20210717
  Serious: Yes (Hospitalization)
  Sender: FDA-Public Use
  Company Number: CA-ABBVIE-21K-028-3959768-00

PATIENT
  Age: 73 Year
  Sex: Male

DRUGS (1)
  1. HUMIRA [Suspect]
     Active Substance: ADALIMUMAB
     Indication: CROHN^S DISEASE
     Route: 058
     Dates: start: 20190604

REACTIONS (11)
  - Faecal calprotectin decreased [Unknown]
  - Diarrhoea [Unknown]
  - Sternal fracture [Recovering/Resolving]
  - Rib fracture [Recovering/Resolving]
  - Adverse food reaction [Unknown]
  - Abdominal pain [Unknown]
  - Contusion [Unknown]
  - Lung perforation [Recovering/Resolving]
  - Hand fracture [Recovering/Resolving]
  - Road traffic accident [Unknown]
  - Arthralgia [Unknown]

NARRATIVE: CASE EVENT DATE: 20210223
